FAERS Safety Report 19070213 (Version 1)
Quarter: 2021Q1

REPORT INFORMATION
  Report Type: Spontaneous
  Country: FR (occurrence: FR)
  Receive Date: 20210329
  Receipt Date: 20210329
  Transmission Date: 20210420
  Serious: Yes (Life-Threatening)
  Sender: FDA-Public Use
  Company Number: FR-ELI_LILLY_AND_COMPANY-FR202103012464

PATIENT
  Age: 12 Year
  Sex: Female
  Weight: 57 kg

DRUGS (3)
  1. ACIDE ACETYLSALICYLIQUE [Suspect]
     Active Substance: ASPIRIN
     Indication: POISONING DELIBERATE
     Dosage: 4875 MG, UNKNOWN
     Route: 048
  2. SPASFON LYOC [Concomitant]
     Active Substance: PHLOROGLUCINOL
     Indication: POISONING DELIBERATE
     Dosage: 1280 MG, UNKNOWN
     Route: 048
  3. PROZAC [Suspect]
     Active Substance: FLUOXETINE HYDROCHLORIDE
     Indication: POISONING DELIBERATE
     Dosage: 260 MG, UNKNOWN
     Route: 048

REACTIONS (6)
  - Chromaturia [Recovered/Resolved]
  - Hypokalaemia [Recovered/Resolved]
  - Renal failure [Recovered/Resolved]
  - Abdominal pain [Recovered/Resolved]
  - Overdose [Recovered/Resolved]
  - Vomiting [Recovered/Resolved]

NARRATIVE: CASE EVENT DATE: 20210228
